FAERS Safety Report 8806332 (Version 1)
Quarter: 2012Q4

REPORT INFORMATION
  Report Type: 
  Country: JP (occurrence: JP)
  Receive Date: 20120925
  Receipt Date: 20120925
  Transmission Date: 20130627
  Serious: Yes (Death)
  Sender: FDA-Public Use
  Company Number: JP-ASTELLAS-2012JP008682

PATIENT
  Age: 15 Year
  Sex: Male
  Weight: 74.5 kg

DRUGS (24)
  1. FUNGUARD [Suspect]
     Indication: FUNGAL INFECTION
     Dosage: UNK
     Route: 065
  2. DOXORUBICIN [Concomitant]
     Route: 065
  3. AMPHOTERICIN B, LIPOSOME [Concomitant]
     Indication: FUNGAL INFECTION
     Dosage: 350 mg, Unknown/D
     Route: 065
  4. VORICONAZOLE [Concomitant]
     Indication: FUNGAL INFECTION
     Dosage: 400 mg, Unknown/D
     Route: 065
  5. VORICONAZOLE [Concomitant]
     Indication: PNEUMONIA
  6. MEXILETINE [Concomitant]
     Indication: TORSADE DE POINTES
     Dosage: 2 mg/kg, Unknown/D
     Route: 041
  7. MEXILETINE [Concomitant]
     Indication: VENTRICULAR TACHYCARDIA
     Dosage: 0.3 UNK, UNK
     Route: 041
  8. MEXILETINE [Concomitant]
     Indication: VENTRICULAR FIBRILLATION
  9. PROPRANOLOL [Concomitant]
     Indication: TORSADE DE POINTES
     Dosage: 30 mg, Unknown/D
     Route: 065
  10. PROPRANOLOL [Concomitant]
     Indication: VENTRICULAR TACHYCARDIA
  11. PROPRANOLOL [Concomitant]
     Indication: VENTRICULAR FIBRILLATION
  12. NIFEKALANT [Concomitant]
     Indication: TORSADE DE POINTES
     Route: 065
  13. NIFEKALANT [Concomitant]
     Indication: VENTRICULAR TACHYCARDIA
  14. NIFEKALANT [Concomitant]
     Indication: VENTRICULAR FIBRILLATION
  15. LIDOCAINE [Concomitant]
     Indication: TORSADE DE POINTES
     Route: 065
  16. LIDOCAINE [Concomitant]
     Indication: VENTRICULAR TACHYCARDIA
  17. LIDOCAINE [Concomitant]
     Indication: VENTRICULAR FIBRILLATION
  18. AMIODARON                          /00133101/ [Concomitant]
     Indication: TORSADE DE POINTES
     Dosage: 1.6 mg/kg, Unknown/D
     Route: 040
  19. AMIODARON                          /00133101/ [Concomitant]
     Indication: VENTRICULAR TACHYCARDIA
     Dosage: UNK
     Route: 041
  20. AMIODARON                          /00133101/ [Concomitant]
     Indication: VENTRICULAR FIBRILLATION
  21. PHENYTOIN [Concomitant]
     Dosage: 250 mg, Unknown/D
     Route: 065
  22. DOPAMINE [Concomitant]
     Route: 065
  23. DOBUTAMINE [Concomitant]
     Route: 065
  24. HANP [Concomitant]
     Route: 065

REACTIONS (2)
  - Drug ineffective [Unknown]
  - Aspergillosis [Fatal]
